FAERS Safety Report 6097245-4 (Version None)
Quarter: 2009Q1

REPORT INFORMATION
  Report Type: 
  Country: None (occurrence: None)
  Receive Date: 20090227
  Receipt Date: 20090224
  Transmission Date: 20090719
  Serious: Yes (Death, Life-Threatening)
  Sender: FDA-Public Use
  Company Number: B0561381A

PATIENT
  Age: 62 Year
  Sex: Male

DRUGS (4)
  1. CLAMOXYL [Suspect]
     Indication: INFECTION
     Dosage: 1000MG PER DAY
     Dates: start: 20081104
  2. OMNIPAQUE 140 [Suspect]
     Indication: ABDOMEN SCAN
     Dosage: 30000MG SINGLE DOSE
     Route: 042
     Dates: start: 20081106, end: 20081106
  3. INIPOMP [Suspect]
     Dosage: 40MG PER DAY
     Route: 048
     Dates: start: 20081030
  4. ATROVENT [Suspect]
     Route: 055

REACTIONS (9)
  - CARDIO-RESPIRATORY ARREST [None]
  - CONVULSION [None]
  - CYANOSIS [None]
  - LOSS OF CONSCIOUSNESS [None]
  - MALAISE [None]
  - MULTI-ORGAN FAILURE [None]
  - PARAESTHESIA ORAL [None]
  - PUPILLARY DISORDER [None]
  - PUPILS UNEQUAL [None]
